FAERS Safety Report 8186407-8 (Version None)
Quarter: 2012Q1

REPORT INFORMATION
  Report Type: 
  Country: None (occurrence: None)
  Receive Date: 20120306
  Receipt Date: 20120227
  Transmission Date: 20120608
  Serious: Yes (Hospitalization, Other)
  Sender: FDA-Public Use
  Company Number: US-BAYER-2011-045911

PATIENT
  Age: 41 Year
  Sex: Female
  Weight: 61.224 kg

DRUGS (3)
  1. YASMIN [Suspect]
     Indication: ORAL CONTRACEPTION
     Dosage: UNK
     Route: 048
     Dates: start: 20010801, end: 20021101
  2. MOTRIN [Concomitant]
  3. ALBUTEROL [Concomitant]
     Dosage: UNK UNK, PRN

REACTIONS (11)
  - PULMONARY EMBOLISM [None]
  - PAIN [None]
  - FEAR [None]
  - MENTAL DISORDER [None]
  - MYOCARDIAL INFARCTION [None]
  - CEREBROVASCULAR ACCIDENT [None]
  - ANHEDONIA [None]
  - GALLBLADDER DISORDER [None]
  - PELVIC VENOUS THROMBOSIS [None]
  - ANXIETY [None]
  - DEEP VEIN THROMBOSIS [None]
